FAERS Safety Report 9253044 (Version 1)
Quarter: 2013Q2

REPORT INFORMATION
  Report Type: Spontaneous
  Country: JP (occurrence: JP)
  Receive Date: 20130424
  Receipt Date: 20130424
  Transmission Date: 20140414
  Serious: Yes (Life-Threatening)
  Sender: FDA-Public Use
  Company Number: JP-B.I. PHARMACEUTICALS,INC./RIDGEFIELD-2013-BI-11454NB

PATIENT
  Sex: 0

DRUGS (4)
  1. PRADAXA [Suspect]
     Dosage: 150 MG
     Dates: end: 20130424
  2. TAKEPRON [Concomitant]
  3. HERBESSER [Concomitant]
  4. SIGMART [Concomitant]

REACTIONS (2)
  - Cardiac arrest [Unknown]
  - Off label use [Unknown]
